FAERS Safety Report 16152439 (Version 1)
Quarter: 2019Q2

REPORT INFORMATION
  Report Type: Spontaneous
  Country: FR (occurrence: FR)
  Receive Date: 20190403
  Receipt Date: 20190403
  Transmission Date: 20190711
  Serious: Yes (Other)
  Sender: FDA-Public Use
  Company Number: FR-ACCORD-117582

PATIENT
  Age: 65 Year
  Sex: Female
  Weight: 107 kg

DRUGS (4)
  1. AZANTAC [Concomitant]
     Active Substance: RANITIDINE HYDROCHLORIDE
     Dosage: STRENGTH  INJECTABLE 50 MG/2 ML
     Dates: start: 20180816, end: 20180926
  2. PACLITAXEL ACCORD [Suspect]
     Active Substance: PACLITAXEL
     Indication: BREAST CANCER
     Route: 042
     Dates: start: 20180816, end: 20180926
  3. ZOPHREN [Concomitant]
     Active Substance: ONDANSETRON
     Dosage: STRENGTH 8 MG/4 ML
     Route: 042
     Dates: start: 20180816, end: 20180816
  4. BETAMETHASONE. [Concomitant]
     Active Substance: BETAMETHASONE
     Route: 042
     Dates: start: 20180816, end: 20180826

REACTIONS (5)
  - Headache [Recovered/Resolved]
  - Aphthous ulcer [Recovered/Resolved]
  - Diarrhoea [Recovered/Resolved]
  - Asthenia [Recovered/Resolved]
  - Weight decreased [Recovered/Resolved]

NARRATIVE: CASE EVENT DATE: 20180911
